FAERS Safety Report 13665753 (Version 1)
Quarter: 2017Q2

REPORT INFORMATION
  Report Type: Spontaneous
  Country: US (occurrence: US)
  Receive Date: 20170619
  Receipt Date: 20170619
  Transmission Date: 20170830
  Serious: Yes (Hospitalization, Other)
  Sender: FDA-Public Use
  Company Number: US-SA-2017SA106805

PATIENT
  Age: 71 Year
  Sex: Male

DRUGS (2)
  1. LANTUS [Suspect]
     Active Substance: INSULIN GLARGINE
     Indication: TYPE 2 DIABETES MELLITUS
     Dosage: DOSE:50 UNIT(S)
     Route: 051
  2. LANTUS [Suspect]
     Active Substance: INSULIN GLARGINE
     Indication: TYPE 2 DIABETES MELLITUS
     Dosage: DOSE- 75-90 UNITS DEPENDING UPON SUGAR?FREQUENCY- WHEN CHECKED SUGAR
     Route: 051

REACTIONS (7)
  - Cerebrovascular accident [Not Recovered/Not Resolved]
  - Seizure [Unknown]
  - Glycosylated haemoglobin increased [Not Recovered/Not Resolved]
  - Infection [Unknown]
  - Gallbladder disorder [Unknown]
  - Blood glucose increased [Not Recovered/Not Resolved]
  - Product use issue [Unknown]

NARRATIVE: CASE EVENT DATE: 201511
